FAERS Safety Report 17350245 (Version 1)
Quarter: 2020Q1

REPORT INFORMATION
  Report Type: Spontaneous
  Country: US (occurrence: US)
  Receive Date: 20200130
  Receipt Date: 20200130
  Transmission Date: 20200409
  Serious: Yes (Life-Threatening, Hospitalization)
  Sender: FDA-Public Use
  Company Number: US-BAYER-2020-012825

PATIENT
  Age: 64 Year
  Sex: Male

DRUGS (3)
  1. APIXABAN [Interacting]
     Active Substance: APIXABAN
  2. ACETYLSALICYLIC ACID [Suspect]
     Active Substance: ASPIRIN
  3. CLOPIDOGREL [Interacting]
     Active Substance: CLOPIDOGREL BISULFATE

REACTIONS (3)
  - Intra-abdominal haemorrhage [Recovering/Resolving]
  - Splenic rupture [Recovered/Resolved]
  - Labelled drug-drug interaction medication error [None]
